FAERS Safety Report 6718251-X (Version None)
Quarter: 2010Q2

REPORT INFORMATION
  Report Type: 
  Country: None (occurrence: None)
  Receive Date: 20100505
  Receipt Date: 20100421
  Transmission Date: 20101027
  Serious: Yes (Other)
  Sender: FDA-Public Use
  Company Number: ZYD-10-AE-056

PATIENT
  Age: 66 Year
  Sex: Female

DRUGS (5)
  1. RISPERIDONE [Suspect]
     Indication: SCHIZOPHRENIA
     Dosage: 2MG, QHS, ORAL
     Route: 048
  2. FOSAMAX [Concomitant]
  3. LEVOTHROID [Concomitant]
  4. FEMARA [Concomitant]
  5. ADVIL [Concomitant]

REACTIONS (2)
  - GLAUCOMA [None]
  - PRODUCT SUBSTITUTION ISSUE [None]
